FAERS Safety Report 24026177 (Version 1)
Quarter: 2024Q2

REPORT INFORMATION
  Report Type: Spontaneous
  Country: GB (occurrence: GB)
  Receive Date: 20240628
  Receipt Date: 20240628
  Transmission Date: 20240716
  Serious: Yes (Hospitalization, Other)
  Sender: FDA-Public Use
  Company Number: None

PATIENT
  Age: 49 Year
  Sex: Male

DRUGS (241)
  1. CYCLOPHOSPHAMIDE [Suspect]
     Active Substance: CYCLOPHOSPHAMIDE
     Indication: B-cell lymphoma
     Dosage: UNK
     Route: 065
     Dates: end: 20220512
  2. CYCLOPHOSPHAMIDE [Suspect]
     Active Substance: CYCLOPHOSPHAMIDE
     Dosage: UNK (DOSE 1, CYCLE/RCHOP CHEMO - DOSE AND EXACT ROUTE NOT KNOWN CYCLIC (6 CYCLE, RCHOP CHEMO - DOSE)
     Route: 065
     Dates: end: 20220512
  3. CYCLOPHOSPHAMIDE [Suspect]
     Active Substance: CYCLOPHOSPHAMIDE
     Dosage: UNK (RCHOP CHEMO - DOSE AND EXACT ROUTE NOT KNOWN)
     Route: 065
     Dates: end: 20220512
  4. CYCLOPHOSPHAMIDE [Suspect]
     Active Substance: CYCLOPHOSPHAMIDE
     Dosage: UNK (RCHOP CHEMO - DOSE AND EXACT ROUTE NOT KNOWN)
     Route: 065
     Dates: end: 20220512
  5. CYCLOPHOSPHAMIDE [Suspect]
     Active Substance: CYCLOPHOSPHAMIDE
     Dosage: UNK (RCHOP CHEMO - DOSE AND EXACT ROUTE NOT KNOWN)
     Route: 065
     Dates: end: 20220512
  6. CYCLOPHOSPHAMIDE [Suspect]
     Active Substance: CYCLOPHOSPHAMIDE
     Dosage: UNK (RCHOP CHEMO - DOSE AND EXACT ROUTE NOT KNOWN)
     Route: 065
     Dates: end: 20220512
  7. CYCLOPHOSPHAMIDE [Suspect]
     Active Substance: CYCLOPHOSPHAMIDE
     Dosage: UNK (RCHOP CHEMO - DOSE AND EXACT ROUTE NOT KNOWN.)
     Route: 065
     Dates: end: 20220512
  8. CYCLOPHOSPHAMIDE [Suspect]
     Active Substance: CYCLOPHOSPHAMIDE
     Dosage: UNK (RCHOP CHEMO)
     Route: 065
     Dates: end: 20220512
  9. CYCLOPHOSPHAMIDE [Suspect]
     Active Substance: CYCLOPHOSPHAMIDE
     Dosage: UNK (RCHOP CHEMO, MOST RECENT DOSE ON 12/MAY/2022)
     Route: 065
     Dates: end: 20220512
  10. CYCLOPHOSPHAMIDE [Suspect]
     Active Substance: CYCLOPHOSPHAMIDE
     Dosage: UNK UNK, CYCLIC (CYCLIC (RCHOP CHEMO - DOSE AND EXACT ROUTE NOT KNOWN CYCLIC (6 CYCLE, RCHOP CHEMO -
     Route: 065
     Dates: end: 20220512
  11. CYCLOPHOSPHAMIDE [Suspect]
     Active Substance: CYCLOPHOSPHAMIDE
     Indication: B-cell lymphoma
     Dosage: RCHOP CHEMO - DOSE AND EXACT ROUTE NOT KNOWN.; UNK UNK, CYCLIC (6 CYCLE, RCHOP CHEMO - DOSE)
     Route: 065
     Dates: end: 20220512
  12. CYCLOPHOSPHAMIDE [Suspect]
     Active Substance: CYCLOPHOSPHAMIDE
     Dosage: RCHOP CHEMO - DOSE AND EXACT ROUTE NOT KNOWN.; UNK UNK, CYCLIC (6 CYCLE, RCHOP CHEMO - DOSE)
     Route: 065
     Dates: end: 20220512
  13. CYCLOPHOSPHAMIDE [Suspect]
     Active Substance: CYCLOPHOSPHAMIDE
     Dosage: RCHOP CHEMO - DOSE AND EXACT ROUTE NOT KNOWN.; UNK UNK, CYCLIC (6 CYCLE, RCHOP CHEMO - DOSE)
     Route: 065
     Dates: end: 20220512
  14. CYCLOPHOSPHAMIDE [Suspect]
     Active Substance: CYCLOPHOSPHAMIDE
     Dosage: RCHOP CHEMO - DOSE AND EXACT ROUTE NOT KNOWN.; UNK UNK, CYCLIC (6 CYCLE, RCHOP CHEMO - DOSE)
     Route: 065
     Dates: end: 20220512
  15. CYCLOPHOSPHAMIDE [Suspect]
     Active Substance: CYCLOPHOSPHAMIDE
     Dosage: RCHOP CHEMO - DOSE AND EXACT ROUTE NOT KNOWN.; UNK UNK, CYCLIC (6 CYCLE, RCHOP CHEMO - DOSE)
     Route: 065
     Dates: end: 20220512
  16. CYCLOPHOSPHAMIDE [Suspect]
     Active Substance: CYCLOPHOSPHAMIDE
     Dosage: RCHOP CHEMO - DOSE AND EXACT ROUTE NOT KNOWN.; UNK UNK, CYCLIC (6 CYCLE, RCHOP CHEMO - DOSE)
     Route: 065
     Dates: end: 20220512
  17. CYCLOPHOSPHAMIDE [Suspect]
     Active Substance: CYCLOPHOSPHAMIDE
     Dosage: RCHOP CHEMO - DOSE AND EXACT ROUTE NOT KNOWN.; UNK UNK, CYCLIC (6 CYCLE, RCHOP CHEMO - DOSE)
     Route: 065
     Dates: end: 20220512
  18. CYCLOPHOSPHAMIDE [Suspect]
     Active Substance: CYCLOPHOSPHAMIDE
     Dosage: RCHOP CHEMO - DOSE AND EXACT ROUTE NOT KNOWN.; UNK UNK, CYCLIC (6 CYCLE, RCHOP CHEMO - DOSE)
     Route: 065
     Dates: end: 20220512
  19. CYCLOPHOSPHAMIDE [Suspect]
     Active Substance: CYCLOPHOSPHAMIDE
     Dosage: RCHOP CHEMO - DOSE AND EXACT ROUTE NOT KNOWN.; UNK UNK, CYCLIC (6 CYCLE, RCHOP CHEMO - DOSE)
     Route: 065
     Dates: end: 20220512
  20. CYCLOPHOSPHAMIDE [Suspect]
     Active Substance: CYCLOPHOSPHAMIDE
     Dosage: UNK UNK, CYCLIC (RCHOP CHEMO - DOSE AND EXACT ROUTE N); RCHOP CHEMO - DOSE AND EXACT ROUTE NOT KNOWN
     Route: 065
  21. CYCLOPHOSPHAMIDE [Suspect]
     Active Substance: CYCLOPHOSPHAMIDE
     Dosage: UNK UNK, CYCLIC (RCHOP CHEMO - DOSE AND EXACT ROUTE N); RCHOP CHEMO - DOSE AND EXACT ROUTE NOT KNOWN
     Route: 065
  22. CYCLOPHOSPHAMIDE [Suspect]
     Active Substance: CYCLOPHOSPHAMIDE
     Dosage: UNK, CYCLIC (6 CYCLE, RCHOP CHEMO - DOSE)
     Route: 065
     Dates: end: 20220512
  23. CYCLOPHOSPHAMIDE [Suspect]
     Active Substance: CYCLOPHOSPHAMIDE
     Dosage: UNK, CYCLIC (6 CYCLE, RCHOP CHEMO - DOSE)
     Route: 065
     Dates: end: 20220512
  24. CYCLOPHOSPHAMIDE [Suspect]
     Active Substance: CYCLOPHOSPHAMIDE
     Dosage: UNK, CYCLIC (6 CYCLE, RCHOP CHEMO - DOSE)
     Route: 065
     Dates: end: 20220512
  25. CYCLOPHOSPHAMIDE [Suspect]
     Active Substance: CYCLOPHOSPHAMIDE
     Dosage: UNK, CYCLIC (6 CYCLE, RCHOP CHEMO - DOSE)
     Route: 065
     Dates: end: 20220512
  26. CYCLOPHOSPHAMIDE [Suspect]
     Active Substance: CYCLOPHOSPHAMIDE
     Dosage: UNK, CYCLIC (6 CYCLE, RCHOP CHEMO - DOSE)
     Route: 065
     Dates: end: 20220512
  27. CYCLOPHOSPHAMIDE [Suspect]
     Active Substance: CYCLOPHOSPHAMIDE
     Dosage: UNK, CYCLIC (6 CYCLE, RCHOP CHEMO - DOSE)
     Route: 065
     Dates: end: 20220512
  28. CYCLOPHOSPHAMIDE [Suspect]
     Active Substance: CYCLOPHOSPHAMIDE
     Dosage: UNK, CYCLIC (6 CYCLE, RCHOP CHEMO - DOSE)
     Route: 065
     Dates: end: 20220512
  29. CYCLOPHOSPHAMIDE [Suspect]
     Active Substance: CYCLOPHOSPHAMIDE
     Dosage: UNKRCHOP CHEMO - DOSE AND EXACT ROUTE NOT KNOWN.; UNK UNK, CYCLIC (RCHOP CHEMO, MOST RECENT DOSE ON
     Route: 065
  30. PREDNISOLONE [Suspect]
     Active Substance: PREDNISOLONE
     Dosage: UNK (DOSE:1, CYCLE/ RCHOP CHEMO - DOSE AND EXACT ROUTE NOT KNOWN CYCLIC (6 CYCLE, RCHOP CHEMO - DOSE
     Route: 065
     Dates: end: 20220512
  31. PREDNISOLONE [Suspect]
     Active Substance: PREDNISOLONE
     Dosage: UNK (RCHOP CHEMO - DOSE AND EXACT ROUTE NOT KNOWN, CYCLIC (6 CYCLE, RCHOP CHEMO - DOSE, GASTRO RESIS
     Route: 065
     Dates: end: 20220512
  32. PREDNISOLONE [Suspect]
     Active Substance: PREDNISOLONE
     Dosage: UNK (DOSE:1, CYCLE/ RCHOP CHEMO - DOSE AND EXACT ROUTE NOT KNOWN CYCLIC (6 CYCLE, RCHOP CHEMO - DOSE
     Route: 065
     Dates: end: 20220512
  33. PREDNISOLONE [Suspect]
     Active Substance: PREDNISOLONE
     Dosage: UNK (RCHOP CHEMO - DOSE AND EXACT ROUTE NOT KNOWN, CYCLIC (6 CYCLE, RCHOP CHEMO - DOSE, GASTRO RESIS
     Route: 065
     Dates: end: 20220512
  34. PREDNISOLONE [Suspect]
     Active Substance: PREDNISOLONE
     Dosage: UNK (RCHOP CHEMO - DOSE AND EXACT ROUTE NOT KNOWN.)
     Route: 065
     Dates: end: 20220512
  35. PREDNISOLONE [Suspect]
     Active Substance: PREDNISOLONE
     Indication: B-cell lymphoma
     Dosage: UNK, CYCLIC (6 CYCLE, RCHOP CHEMO - DOSE, GASTRO RESISTANT)
     Route: 065
     Dates: end: 20220512
  36. PREDNISOLONE [Suspect]
     Active Substance: PREDNISOLONE
     Dosage: RCHOP CHEMO - DOSE AND EXACT ROUTE NOT KNOWN CYCLIC (6 CYCLE, RCHOP CHEMO - DOSE, GASTRO RESISTANT)
     Route: 042
     Dates: end: 20220512
  37. PREDNISOLONE [Suspect]
     Active Substance: PREDNISOLONE
     Dosage: RCHOP CHEMO - DOSE AND EXACT ROUTE NOT KNOWN CYCLIC (6 CYCLE, RCHOP CHEMO - DOSE, GASTRO RESISTANT)
     Route: 065
     Dates: end: 20220512
  38. PREDNISOLONE [Suspect]
     Active Substance: PREDNISOLONE
     Indication: B-cell lymphoma
     Dosage: RCHOP CHEMO - DOSE AND EXACT ROUTE NOT KNOWN CYCLIC (6 CYCLE, RCHOP CHEMO - DOSE, GASTRORESISTANT),
     Route: 042
     Dates: end: 20220512
  39. PREDNISOLONE [Suspect]
     Active Substance: PREDNISOLONE
     Dosage: UNK (RCHOP CHEMO - DOSE AND EXACT R)
     Route: 065
     Dates: end: 20220512
  40. PREDNISOLONE [Suspect]
     Active Substance: PREDNISOLONE
     Dosage: UNK (RCHOP CHEMO - DOSE AND EXACT ROUTE NOT KNOWN, CYCLIC (6 CYCLE, RCHOP CHEMO - DOSE, GASTRO RESIS
     Route: 065
     Dates: end: 20220512
  41. PREDNISOLONE [Suspect]
     Active Substance: PREDNISOLONE
     Dosage: UNK (RCHOP CHEMO - DOSE AND EXACT ROUTE NOT KNOWN., GASTRO RESISTANT
     Route: 065
     Dates: end: 20220512
  42. PREDNISOLONE [Suspect]
     Active Substance: PREDNISOLONE
     Dosage: UNK UNK, CYCLIC
     Route: 065
     Dates: end: 20220512
  43. PREDNISOLONE [Suspect]
     Active Substance: PREDNISOLONE
     Dosage: UNK UNK, CYCLIC
     Route: 065
     Dates: end: 20220512
  44. PREDNISOLONE [Suspect]
     Active Substance: PREDNISOLONE
     Dosage: UNK UNK, CYCLIC (6 CYCLE, RCHOP CHEMO - DOSE)
     Route: 065
     Dates: end: 20220512
  45. PREDNISOLONE [Suspect]
     Active Substance: PREDNISOLONE
     Dosage: UNK UNK, CYCLIC (6 CYCLE, RCHOP CHEMO - DOSE, GASTRO RESISTAN)
     Route: 065
     Dates: end: 20220512
  46. PREDNISOLONE [Suspect]
     Active Substance: PREDNISOLONE
     Dosage: UNK UNK, CYCLIC (6 CYCLE, RCHOP CHEMO - DOSE, GASTRO RESISTANT)
     Route: 065
     Dates: end: 20220512
  47. PREDNISOLONE [Suspect]
     Active Substance: PREDNISOLONE
     Dosage: UNK UNK, CYCLIC (6 CYCLE, RCHOP CHEMO - DOSE, GASTRO RESISTANT)
     Route: 065
     Dates: end: 20220512
  48. PREDNISOLONE [Suspect]
     Active Substance: PREDNISOLONE
     Dosage: UNK UNK, CYCLIC (6 CYCLE, RCHOP CHEMO - DOSE, GASTRO RESISTANT) - MOST RECENT DOSE ON 12 MAY 2022
     Route: 065
     Dates: end: 20220512
  49. DOXORUBICIN [Suspect]
     Active Substance: DOXORUBICIN
     Dosage: ^DOSAGE FORM: INJECTION, CYCLIC (6 CYCLE, RCHOP CHEMO - DOSE), RCHOP CHEMO - DOSE AND EXACT ROUTE NO
     Route: 065
     Dates: end: 20220512
  50. DOXORUBICIN [Suspect]
     Active Substance: DOXORUBICIN
     Dosage: DOSAGE FORM: INJECTION, CYCLIC (6 CYCLE, RCHOP CHEMO - DOSE), RCHOP CHEMO - DOSE AND EXACT ROUTE NOT
     Route: 065
     Dates: end: 20220512
  51. DOXORUBICIN [Suspect]
     Active Substance: DOXORUBICIN
     Dosage: DOSE:1, CYCLE/ RCHOP CHEMO - DOSE AND EXACT ROUTE NOT KNOWN CYCLIC (6 CYCLE, RCHOP CHEMO - DOSE, ...
     Route: 065
     Dates: end: 20220512
  52. DOXORUBICIN [Suspect]
     Active Substance: DOXORUBICIN
     Dosage: DOSE:1, CYCLE/ RCHOP CHEMO - DOSE AND EXACT ROUTE NOT KNOWN CYCLIC (6 CYCLE, RCHOP CHEMO - DOSE, ...
     Route: 065
     Dates: end: 20220512
  53. DOXORUBICIN [Suspect]
     Active Substance: DOXORUBICIN
     Dosage: RCHOP CHEMO - DOSE AND EXACT ROUTE NOT KNOWN. CYCLIC (6 CYCLE, RCHOP CHEMO - DOSE)
     Route: 065
     Dates: end: 20220512
  54. DOXORUBICIN [Suspect]
     Active Substance: DOXORUBICIN
     Dosage: RCHOP CHEMO - DOSE AND EXACT ROUTE NOT KNOWN. CYCLIC (6 CYCLE, RCHOP CHEMO - DOSE), RCHOP CHEMO- DOS
     Route: 065
     Dates: end: 20220512
  55. DOXORUBICIN [Suspect]
     Active Substance: DOXORUBICIN
     Dosage: RCHOP CHEMO; ; ADDITIONAL INFO: RCHOP CHEMO - DOSE AND EXACT ROUTE NOT KNOWN.
     Route: 065
     Dates: end: 20220512
  56. DOXORUBICIN [Suspect]
     Active Substance: DOXORUBICIN
     Indication: B-cell lymphoma
     Dosage: UNK
     Route: 065
     Dates: end: 20220512
  57. DOXORUBICIN [Suspect]
     Active Substance: DOXORUBICIN
     Dosage: UNK (DOSE:1, CYCLE/ RCHOP CHEMO - DOSE AND EXACT ROUTE NOT KNOWN CYCLIC (6 CYCLE, RCHOP CHEMO - DOSE
     Route: 065
     Dates: end: 20220512
  58. DOXORUBICIN [Suspect]
     Active Substance: DOXORUBICIN
     Dosage: UNK (RCHOP CHEMO - DOSE AND EXACT ROUTE NOT KNOWN)
     Route: 065
     Dates: end: 20220512
  59. DOXORUBICIN [Suspect]
     Active Substance: DOXORUBICIN
     Dosage: UNK (RCHOP CHEMO - DOSE AND EXACT ROUTE NOT KNOWN)
     Route: 065
     Dates: end: 20220512
  60. DOXORUBICIN [Suspect]
     Active Substance: DOXORUBICIN
     Dosage: UNK (RCHOP CHEMO - DOSE AND EXACT ROUTE NOT KNOWN); ; ADDITIONAL INFO: RCHOP CHEMO - DOSE AND EXACT
     Route: 065
     Dates: end: 20220512
  61. DOXORUBICIN [Suspect]
     Active Substance: DOXORUBICIN
     Dosage: UNK (RCHOP CHEMO)
     Route: 065
     Dates: end: 20220512
  62. DOXORUBICIN [Suspect]
     Active Substance: DOXORUBICIN
     Dosage: UNK (RCHOP CHEMO)
     Route: 065
     Dates: end: 20220512
  63. DOXORUBICIN [Suspect]
     Active Substance: DOXORUBICIN
     Dosage: UNK UNK, CYCLIC
     Route: 065
     Dates: end: 20220512
  64. DOXORUBICIN [Suspect]
     Active Substance: DOXORUBICIN
     Dosage: UNK UNK, CYCLIC (6 CYCLE RCHOP CHEMO- DOSE AND ROUTE UNKNOWN 12/MAY/2022.)
     Route: 065
     Dates: end: 20220512
  65. DOXORUBICIN [Suspect]
     Active Substance: DOXORUBICIN
     Dosage: UNK UNK, CYCLIC; ; ADDITIONAL INFO: RCHOP CHEMO - DOSE AND EXACT ROUTE NOT KNOWN.
     Route: 065
     Dates: end: 20220512
  66. DOXORUBICIN [Suspect]
     Active Substance: DOXORUBICIN
     Dosage: UNK, CYCLIC (6 CYCLE RCHOP CHEMODOSE AND ROUTE UNKNOWN 12/MAY/2022.); ; ADDITIONAL INFO: RCHOP CHE
     Route: 065
     Dates: end: 20220512
  67. DOXORUBICIN [Suspect]
     Active Substance: DOXORUBICIN
     Dosage: UNK, CYCLIC (6 CYCLE, RCHOP CHEMO - DOSE)
     Route: 065
     Dates: end: 20220512
  68. DOXORUBICIN [Suspect]
     Active Substance: DOXORUBICIN
     Dosage: UNK, CYCLIC (6 CYCLE, RCHOP CHEMO - DOSE)
     Route: 065
     Dates: end: 20220512
  69. DOXORUBICIN [Suspect]
     Active Substance: DOXORUBICIN
     Dosage: UNK, CYCLIC (6 CYCLE, RCHOP CHEMO - DOSE)
     Route: 065
     Dates: end: 20220512
  70. DOXORUBICIN [Suspect]
     Active Substance: DOXORUBICIN
     Dosage: UNK, CYCLIC (6 CYCLE, RCHOP CHEMO - DOSE) DOSAGE FORM: INJECTION
     Route: 065
     Dates: end: 20220512
  71. DOXORUBICIN [Suspect]
     Active Substance: DOXORUBICIN
     Dosage: UNK, CYCLIC (6 CYCLE, RCHOP CHEMO - DOSE) DOSAGE FORM: INJECTION
     Route: 065
     Dates: end: 20220512
  72. DOXORUBICIN [Suspect]
     Active Substance: DOXORUBICIN
     Dosage: UNK, CYCLIC (6 CYCLE, RCHOP CHEMO - DOSE) DOSAGE FORM: INJECTION ; ; ADDITIONAL INFO: RCHOP CHEMO -
     Route: 065
     Dates: end: 20220512
  73. DOXORUBICIN [Suspect]
     Active Substance: DOXORUBICIN
     Dosage: UNK, CYCLIC (6 CYCLE, RCHOP CHEMO - DOSE) DOSAGE FORM: INJECTION ; ; ADDITIONAL INFO: RCHOP CHEMO -
     Route: 065
     Dates: end: 20220512
  74. DOXORUBICIN [Suspect]
     Active Substance: DOXORUBICIN
     Dosage: UNK, CYCLIC (6 CYCLE, RCHOP CHEMO - DOSE) DOSAGE FORM: INJECTION ; ; ADDITIONAL INFO: RCHOP CHEMO -
     Route: 065
     Dates: end: 20220512
  75. DOXORUBICIN [Suspect]
     Active Substance: DOXORUBICIN
     Dosage: UNK, CYCLIC (6 CYCLE, RCHOP CHEMO - DOSE) DOSAGE FORM: INJECTION; ; ADDITIONAL INFO: RCHOP CHEMO - D
     Route: 065
     Dates: end: 20220512
  76. DOXORUBICIN [Suspect]
     Active Substance: DOXORUBICIN
     Dosage: UNK, CYCLIC (6 CYCLE, RCHOP CHEMO - DOSE) DOSAGE FORM: INJECTION; ; ADDITIONAL INFO: RCHOP CHEMO - D
     Route: 065
     Dates: end: 20220512
  77. DOXORUBICIN [Suspect]
     Active Substance: DOXORUBICIN
     Dosage: UNK, CYCLIC (6 CYCLE, RCHOP CHEMO - DOSE) DOSAGE FORM: INJECTION; ; ADDITIONAL INFO: RCHOP CHEMO - D
     Route: 065
     Dates: end: 20220512
  78. DOXORUBICIN [Suspect]
     Active Substance: DOXORUBICIN
     Dosage: UNK, CYCLIC (6 CYCLE, RCHOP CHEMO - DOSE), RCHOP CHEMO - DOSE AND EXACT ROUTE NOT KNOWN
     Route: 065
     Dates: end: 20220512
  79. DOXORUBICIN [Suspect]
     Active Substance: DOXORUBICIN
     Dosage: UNK, CYCLIC (6 CYCLE, RCHOP CHEMO - DOSE), RCHOP CHEMO - DOSE AND EXACT ROUTE NOT KNOWN
     Route: 065
     Dates: end: 20220512
  80. DOXORUBICIN [Suspect]
     Active Substance: DOXORUBICIN
     Dosage: UNK, CYCLIC (6 CYCLE, RCHOP CHEMO - DOSE), RCHOP CHEMO - DOSE AND EXACT ROUTE NOT KNOWN; ; ADDITIONA
     Route: 065
     Dates: end: 20220512
  81. DOXORUBICIN [Suspect]
     Active Substance: DOXORUBICIN
     Dosage: UNK, CYCLIC (6 CYCLE, RCHOP CHEMO - DOSE)UNK
     Route: 065
     Dates: end: 20220512
  82. DOXORUBICIN [Suspect]
     Active Substance: DOXORUBICIN
     Dosage: UNK; ; ADDITIONAL INFO: RCHOP CHEMO - DOSE AND EXACT ROUTE NOT KNOWN.
     Route: 065
     Dates: end: 20220512
  83. DOXORUBICIN [Suspect]
     Active Substance: DOXORUBICIN
     Dosage: MOST RECENT DOSE ON 12/MAY/2022
     Route: 065
     Dates: end: 20220512
  84. DOXORUBICIN [Suspect]
     Active Substance: DOXORUBICIN
     Dosage: 1 CYCLICAL, CYCLIC (6 CYCLE, RCHOP CHEMO - DOSE) RCHOP CHEMO - DOSE AND EXACT ROUTE NOT KNOWN
     Route: 065
     Dates: end: 20220512
  85. DOXORUBICIN [Suspect]
     Active Substance: DOXORUBICIN
     Dosage: DOSAGE FORM: INJECTION, CYCLIC (6 CYCLE, RCHOP CHEMO - DOSE), RCHOP CHEMO - DOSE AND EXACT ROUTE NOT
     Route: 065
  86. DOXORUBICIN [Suspect]
     Active Substance: DOXORUBICIN
     Dosage: RCHOP CHEMO - DOSE AND EXACT ROUTE NOT KNOWN. UNK, CYCLIC (6 CYCLE, RCHOP CHEMO - DOSE)
     Route: 065
     Dates: end: 20220512
  87. DOXORUBICIN [Suspect]
     Active Substance: DOXORUBICIN
     Dosage: UNK
     Route: 065
  88. DOXORUBICIN [Suspect]
     Active Substance: DOXORUBICIN
     Dosage: UNK (RCHOP CHEMO - DOSE AND EXACT ROUTE NOT KNOWN)
     Route: 065
  89. DOXORUBICIN [Suspect]
     Active Substance: DOXORUBICIN
     Dosage: UNK (RCHOP CHEMO - DOSE AND EXACT ROUTE NOT KNOWN)
     Route: 065
  90. DOXORUBICIN [Suspect]
     Active Substance: DOXORUBICIN
     Dosage: UNK (RCHOP CHEMO)
     Route: 065
  91. DOXORUBICIN [Suspect]
     Active Substance: DOXORUBICIN
     Dosage: UNK (MOST RECENT DOSE ON 12/MAY/2022)
     Route: 065
  92. DOXORUBICIN [Suspect]
     Active Substance: DOXORUBICIN
     Dosage: UNK UNK, (DOSE:1, CYCLE/ RCHOP CHEMO - DOSE AND EXACT ROUTE NOT KNOWN CYCLIC (6 CYCLE, RCHOP CHEMO -
     Route: 065
  93. DOXORUBICIN [Suspect]
     Active Substance: DOXORUBICIN
     Dosage: UNK, (6 CYCLE, RCHOP CHEMO - DOSE) DOSAGE FORM: INJECTION)
     Route: 065
  94. DOXORUBICIN [Suspect]
     Active Substance: DOXORUBICIN
     Dosage: UNK, CYCLIC
     Route: 065
  95. DOXORUBICIN [Suspect]
     Active Substance: DOXORUBICIN
     Dosage: UNK, CYCLIC (6 CYCLE RCHOP CHEMODOSE AND ROUTE UNKNOWN 12/MAY/2022)
     Route: 065
     Dates: end: 20220512
  96. DOXORUBICIN [Suspect]
     Active Substance: DOXORUBICIN
     Dosage: UNK, CYCLIC (6 CYCLE, RCHOP CHEMO - DOSE)
     Route: 065
  97. DOXORUBICIN [Suspect]
     Active Substance: DOXORUBICIN
     Indication: B-cell lymphoma
     Dosage: UNK, CYCLIC (6 CYCLE, RCHOP CHEMO - DOSE) DOSAGE FORM: INJECTION)
     Route: 065
  98. DOXORUBICIN [Suspect]
     Active Substance: DOXORUBICIN
     Dosage: UNKUNK, CYCLIC (6 CYCLE, RCHOP CHEMO - DOSE)
     Route: 065
  99. PREDNISOLONE [Suspect]
     Active Substance: PREDNISOLONE
     Dosage: UNK (RCHOP CHEMO)
     Route: 065
     Dates: end: 20220512
  100. PREDNISOLONE [Suspect]
     Active Substance: PREDNISOLONE
     Indication: B-cell lymphoma
     Dosage: UNK (RCHOP CHEMO, MOST RECENT DOSE ON 12/MAY/2022)
     Route: 065
     Dates: end: 20220512
  101. PREDNISOLONE [Suspect]
     Active Substance: PREDNISOLONE
     Dosage: 6 CYCLE, RCHOP CHEMO - DOSE, GASTRO RESISTANT
     Route: 065
     Dates: end: 20220512
  102. PREDNISOLONE [Suspect]
     Active Substance: PREDNISOLONE
     Dosage: ADDITIONAL INFO: ROUTE:UNKNOWN ROUTE:UNKNOWN ROUTE:UNKNOWN ROUTE:UNKNOWN ROUTE:UNKNOWNRCHOP CHEMO...
     Route: 065
     Dates: end: 20220512
  103. PREDNISOLONE [Suspect]
     Active Substance: PREDNISOLONE
     Dosage: CYCLIC,6 CYCLE, RCHOP CHEMO-DOSE,GASTRO RESISTANT
     Route: 065
     Dates: end: 20220512
  104. PREDNISOLONE [Suspect]
     Active Substance: PREDNISOLONE
     Dosage: CYCLIC,6 CYCLE, RCHOP CHEMODOSE,GASTRO RESISTANT (RCHOP CHEMO - DOSE AND EXACT ROUTE NOT KNOWN.)
     Route: 065
     Dates: end: 20220512
  105. PREDNISOLONE [Suspect]
     Active Substance: PREDNISOLONE
     Dosage: RCHOP CHEMO - DOSE AND EXACT ROUTE NOT KNOWN. ADDITIONAL INFO: ROUTE:UNKN
     Route: 065
     Dates: end: 20220512
  106. PREDNISOLONE [Suspect]
     Active Substance: PREDNISOLONE
     Dosage: RCHOP CHEMO - DOSE AND EXACT ROUTE NOT KNOWNCYCLIC (6 CYCLE, RCHOP CHEMO - DOSE, GASTRO RESISTANT
     Route: 065
     Dates: end: 20220512
  107. PREDNISOLONE [Suspect]
     Active Substance: PREDNISOLONE
     Dosage: RCHOP CHEMO, MOST RECENT DOSE ON 12- MAY-2022, ADDITIONAL INFORMATION ON DRUG (FREE TEXT): RCHOP CHE
     Route: 065
     Dates: end: 20220512
  108. PREDNISOLONE [Suspect]
     Active Substance: PREDNISOLONE
     Dosage: RCHOP CHEMO, MOST RECENT DOSE ON 12/MAY/2022
     Route: 065
     Dates: end: 20220512
  109. PREDNISOLONE [Suspect]
     Active Substance: PREDNISOLONE
     Dosage: RCHOP CHEMO; ADDITIONAL INFO: ROUTE:UNKNOWN ROUTE:UNKNOWN ROUTE:UNKNOWN ROUTE:UNKNOWN ROUTE:UNKNOWNR
     Route: 065
     Dates: end: 20220512
  110. PREDNISOLONE [Suspect]
     Active Substance: PREDNISOLONE
     Dosage: UNK (RCHOP CHEMO - DOSE AND EXACT ROUTE NOT KNOWN)
     Route: 065
     Dates: end: 20220512
  111. PREDNISOLONE [Suspect]
     Active Substance: PREDNISOLONE
     Dosage: UNK (RCHOP CHEMO - DOSE AND EXACT ROUTE NOT KNOWN.)
     Route: 042
     Dates: end: 20220512
  112. PREDNISOLONE [Suspect]
     Active Substance: PREDNISOLONE
     Dosage: UNK (RCHOP CHEMO - DOSE AND EXACT ROUTE NOT KNOWN.)
     Route: 065
     Dates: end: 20220512
  113. PREDNISOLONE [Suspect]
     Active Substance: PREDNISOLONE
     Dosage: UNK (RCHOP CHEMO)
     Route: 065
     Dates: end: 20220512
  114. PREDNISOLONE [Suspect]
     Active Substance: PREDNISOLONE
     Dosage: UNK (RCHOP CHEMO, 6 CYCLES- DOSE AND EXACT ROUTE NOT KNOWN)
     Route: 065
     Dates: end: 20220512
  115. PREDNISOLONE [Suspect]
     Active Substance: PREDNISOLONE
     Dosage: UNK (RCHOP CHEMO, MOST RECENT DOSE ON 12/MAY/2022)
     Route: 065
     Dates: end: 20220512
  116. PREDNISOLONE [Suspect]
     Active Substance: PREDNISOLONE
     Dosage: UNK RCHOP CHEMO - DOSE AND EXACT ROUTE NOT KNOWN
     Route: 065
     Dates: end: 20220512
  117. PREDNISOLONE [Suspect]
     Active Substance: PREDNISOLONE
     Dosage: UNK RCHOP CHEMO - DOSE AND EXACT ROUTE NOT KNOWN, ADDITIONAL INFORMATION ON DRUG (FREE TEXT): RCHOP
     Route: 065
     Dates: end: 20220512
  118. PREDNISOLONE [Suspect]
     Active Substance: PREDNISOLONE
     Dosage: UNK RCHOP CHEMO - DOSE AND EXACT ROUTE NOT KNOWN.
     Route: 065
     Dates: end: 20220512
  119. PREDNISOLONE [Suspect]
     Active Substance: PREDNISOLONE
     Dosage: UNK RCHOP CHEMO, 6 CYCLES- DOSE AND EXACT ROUTE NOT KNOWN; ; ADDITIONAL INFO: ROUTE:UNKNOWN ROUTE:UN
     Route: 065
     Dates: end: 20220512
  120. PREDNISOLONE [Suspect]
     Active Substance: PREDNISOLONE
     Dosage: UNK UNK, CYCLIC (6 CYCLE, RCHOP CHEMO - DOSE AND EXACT ROUTE NOT KNOWN)
     Route: 065
     Dates: end: 20220512
  121. PREDNISOLONE [Suspect]
     Active Substance: PREDNISOLONE
     Dosage: UNK UNK, CYCLIC (6 CYCLE, RCHOP CHEMO - DOSE AND EXACT ROUTE NOT KNOWN, CYCLIC (6 CYCLE,
     Route: 065
     Dates: end: 20220512
  122. PREDNISOLONE [Suspect]
     Active Substance: PREDNISOLONE
     Dosage: UNK UNK, CYCLIC (6 CYCLE, RCHOP CHEMO - DOSE)
     Route: 065
     Dates: end: 20220512
  123. PREDNISOLONE [Suspect]
     Active Substance: PREDNISOLONE
     Dosage: UNK UNK, CYCLIC (6 CYCLE, RCHOP CHEMO - DOSE)
     Route: 065
     Dates: end: 20220512
  124. PREDNISOLONE [Suspect]
     Active Substance: PREDNISOLONE
     Dosage: UNK UNK, CYCLIC (6 CYCLE, RCHOP CHEMO - DOSE, GASTRO RESISTANT)
     Route: 065
     Dates: end: 20220512
  125. PREDNISOLONE [Suspect]
     Active Substance: PREDNISOLONE
     Dosage: UNK, CYCLIC (6 CYCLE, RCHOP CHEMO - DOSE, GASTRO RESISTANT
     Route: 065
     Dates: end: 20220512
  126. PREDNISOLONE [Suspect]
     Active Substance: PREDNISOLONE
     Dosage: UNK, CYCLIC (6 CYCLE, RCHOP CHEMO - DOSE, GASTRO RESISTANT)
     Route: 065
     Dates: end: 20220512
  127. PREDNISOLONE [Suspect]
     Active Substance: PREDNISOLONE
     Dosage: UNK, CYCLIC (6 CYCLE, RCHOP CHEMO - DOSE, GASTRO RESISTANT)
     Route: 065
     Dates: end: 20220512
  128. PREDNISOLONE [Suspect]
     Active Substance: PREDNISOLONE
     Dosage: UNK, CYCLIC (6 CYCLE, RCHOP CHEMO - DOSE, GASTRO RESISTANT)
     Route: 065
     Dates: end: 20220512
  129. PREDNISOLONE [Suspect]
     Active Substance: PREDNISOLONE
     Dosage: UNK, CYCLIC (6 CYCLE, RCHOP CHEMO - DOSE, GASTRO RESISTANT)
     Route: 065
     Dates: end: 20220512
  130. PREDNISOLONE [Suspect]
     Active Substance: PREDNISOLONE
     Indication: B-cell lymphoma
     Dosage: UNK, CYCLIC (6 CYCLE, RCHOP CHEMO - DOSE, GASTRO RESISTANT); ; ADDITIONAL INFO: ROUTE:UNKNOWN ROUTE:
     Route: 065
     Dates: end: 20220512
  131. PREDNISOLONE [Suspect]
     Active Substance: PREDNISOLONE
     Dosage: UNK, CYCLIC (6 CYCLE, RCHOP CHEMO - DOSE, GASTRO RESISTANT); ; ADDITIONAL INFO: ROUTE:UNKNOWN ROUTE:
     Route: 065
     Dates: end: 20220512
  132. PREDNISOLONE [Suspect]
     Active Substance: PREDNISOLONE
     Dosage: UNK. UNK, CYCLIC
     Route: 065
     Dates: end: 20220512
  133. RITUXIMAB [Suspect]
     Active Substance: RITUXIMAB
     Dosage: UNK (RCHOP CHEMO - DOSE AND EXACT ROUTE NOT KNOWN.)
     Route: 065
     Dates: end: 20220512
  134. RITUXIMAB [Suspect]
     Active Substance: RITUXIMAB
     Dosage: UNK (RCHOP CHEMO)
     Route: 065
     Dates: end: 20220512
  135. RITUXIMAB [Suspect]
     Active Substance: RITUXIMAB
     Dosage: UNK (MOST RECENT DOSE ON 12/MAY/2022)
     Route: 065
     Dates: end: 20220512
  136. RITUXIMAB [Suspect]
     Active Substance: RITUXIMAB
     Dosage: UNK, CYCLIC (DOSE:1, CYCLE /RCHOP CHEMO - DOSE AND EXACT ROUTE NOT KNOWN. UNK, CYCLIC (6 CYCLE, RCHO
     Route: 042
     Dates: end: 20220512
  137. RITUXIMAB [Suspect]
     Active Substance: RITUXIMAB
     Dosage: UNK, CYCLIC (RCHOP CHEMO - DOSE AND EXACT ROUTE NOT KNOWN.UNK, CYCLIC (6 CYCLE, RCHOP CHEMO - DOSE)
     Route: 041
     Dates: end: 20220512
  138. RITUXIMAB [Suspect]
     Active Substance: RITUXIMAB
     Indication: B-cell lymphoma
     Dosage: UNK, CYCLIC (RCHOP CHEMO - DOSE AND EXACT ROUTE NOT KNOWN.UNK, CYCLIC (6 CYCLE, RCHOP CHEMO - DOSE)
     Route: 042
     Dates: end: 20220512
  139. RITUXIMAB [Suspect]
     Active Substance: RITUXIMAB
     Dosage: UNK, CYCLIC (RCHOP CHEMO - DOSE AND EXACT ROUTE NOT KNOWN.UNK, CYCLIC (6 CYCLE, RCHOP CHEMO - DOSE)
     Route: 042
     Dates: end: 20220512
  140. RITUXIMAB [Suspect]
     Active Substance: RITUXIMAB
     Dosage: CYCLIC (6 CYCLE, RCHOP CHEMO - DOSE); INTRAVENOUS DRIP
     Route: 041
     Dates: end: 20220512
  141. RITUXIMAB [Suspect]
     Active Substance: RITUXIMAB
     Dosage: CYCLIC (6 CYCLE, RCHOP CHEMO - DOSE); INTRAVENOUS DRIP
     Route: 041
     Dates: end: 20220512
  142. RITUXIMAB [Suspect]
     Active Substance: RITUXIMAB
     Dosage: CYCLIC (RCHOP CHEMO - DOSE AND EXACT ROUTE NOT KNOWN.UNK, CYCLIC (6 CYCLE, RCHOP CHEMO - DOSE); ; AD
     Route: 042
     Dates: end: 20220512
  143. RITUXIMAB [Suspect]
     Active Substance: RITUXIMAB
     Dosage: CYCLIC (RCHOP CHEMO - DOSE AND EXACT ROUTE NOT KNOWN.UNK, CYCLIC (6 CYCLE, RCHOP CHEMO - DOSE); ; AD
     Route: 042
     Dates: end: 20220512
  144. RITUXIMAB [Suspect]
     Active Substance: RITUXIMAB
     Dosage: CYCLIC (RCHOP CHEMO - DOSE AND EXACT ROUTE NOT KNOWN.UNK, CYCLIC (6 CYCLE, RCHOP CHEMO - DOSE); ; AD
     Route: 042
     Dates: end: 20220512
  145. RITUXIMAB [Suspect]
     Active Substance: RITUXIMAB
     Dosage: CYCLIC (MOST RECENT DOSE ON (6 CYCLE, RCHOP CHEMO - DOSE)
     Route: 042
     Dates: end: 20220512
  146. RITUXIMAB [Suspect]
     Active Substance: RITUXIMAB
     Dosage: CYCLIC (MOST RECENT DOSE ON (6 CYCLE, RCHOP CHEMO - DOSE)
     Route: 042
     Dates: end: 20220512
  147. RITUXIMAB [Suspect]
     Active Substance: RITUXIMAB
     Dosage: DOSE:1, CYCLE /RCHOP CHEMO - DOSE AND EXACT ROUTE NOT KNOWN. UNK, CYCLIC (6 CYCLE, RCHOP CHEMO - DOS
     Route: 042
     Dates: end: 20220512
  148. RITUXIMAB [Suspect]
     Active Substance: RITUXIMAB
     Dosage: DOSE:1, CYCLE /RCHOP CHEMO - DOSE AND EXACT ROUTE NOT KNOWN. UNK, CYCLIC (6 CYCLE, RCHOP CHEMO - DOS
     Route: 042
     Dates: end: 20220512
  149. RITUXIMAB [Suspect]
     Active Substance: RITUXIMAB
     Dosage: DOSE:1, CYCLE /RCHOP CHEMO - DOSE AND EXACT ROUTE NOT KNOWN. UNK, CYCLIC (6 CYCLE, RCHOP CHEMO - DOS
     Route: 042
     Dates: end: 20220512
  150. RITUXIMAB [Suspect]
     Active Substance: RITUXIMAB
     Dosage: RCHOP CHEMO - DOSE AND EXACT ROUTE NOT KNOWN
     Route: 042
     Dates: end: 20220512
  151. RITUXIMAB [Suspect]
     Active Substance: RITUXIMAB
     Dosage: RCHOP CHEMO - DOSE AND EXACT ROUTE NOT KNOWN
     Route: 065
     Dates: end: 20220512
  152. RITUXIMAB [Suspect]
     Active Substance: RITUXIMAB
     Dosage: RCHOP CHEMO - DOSE AND EXACT ROUTE NOT KNOWN.
     Route: 042
     Dates: end: 20220512
  153. RITUXIMAB [Suspect]
     Active Substance: RITUXIMAB
     Dosage: RCHOP CHEMO - DOSE AND EXACT ROUTE NOT KNOWN. UNK, CYCLIC (6 CYCLE, RCHOP CHEMO - DOSE)
     Route: 065
  154. RITUXIMAB [Suspect]
     Active Substance: RITUXIMAB
     Dosage: RCHOP CHEMO - DOSE AND EXACT ROUTE NOT KNOWN. UNK, CYCLIC (6 CYCLE, RCHOP CHEMO - DOSE)
     Route: 065
     Dates: end: 20220512
  155. RITUXIMAB [Suspect]
     Active Substance: RITUXIMAB
     Dosage: RCHOP CHEMO - DOSE AND EXACT ROUTE NOT KNOWN. UNK, CYCLIC (6 CYCLE, RCHOP CHEMO - DOSE), MOST RECENT
     Route: 042
     Dates: end: 20220512
  156. RITUXIMAB [Suspect]
     Active Substance: RITUXIMAB
     Dosage: RCHOP CHEMO - DOSE AND EXACT ROUTE NOT KNOWN. UNK, CYCLIC (6 CYCLE, RCHOP CHEMO - DOSE), MOST RECENT
     Route: 042
     Dates: end: 20220512
  157. RITUXIMAB [Suspect]
     Active Substance: RITUXIMAB
     Dosage: RCHOP CHEMO - DOSE AND EXACT ROUTE NOT KNOWN. UNK, CYCLIC (6 CYCLE, RCHOP CHEMO - DOSE), MOST RECENT
     Route: 042
     Dates: end: 20220512
  158. RITUXIMAB [Suspect]
     Active Substance: RITUXIMAB
     Dosage: RCHOP CHEMO - DOSE AND EXACT ROUTE NOT KNOWN.; ;ADDITIONAL INFO: RCHOP CHEMO - DOSE AND EXACT ROUTE
     Route: 065
     Dates: end: 20220512
  159. RITUXIMAB [Suspect]
     Active Substance: RITUXIMAB
     Dosage: RCHOP CHEMO - DOSE AND EXACT ROUTE NOT KNOWN.UNK, CYCLIC (6 CYCLE, RCHOP CHEMO - DOSE)
     Route: 042
     Dates: end: 20220512
  160. RITUXIMAB [Suspect]
     Active Substance: RITUXIMAB
     Dosage: RCHOP CHEMO - DOSE AND EXACT ROUTE NOT KNOWN.UNK, CYCLIC (6 CYCLE, RCHOP CHEMO - DOSE)
     Route: 042
     Dates: end: 20220512
  161. RITUXIMAB [Suspect]
     Active Substance: RITUXIMAB
     Dosage: RCHOP CHEMO;
     Route: 065
     Dates: end: 20220512
  162. RITUXIMAB [Suspect]
     Active Substance: RITUXIMAB
     Dosage: RHOP CHEMO;
     Route: 065
     Dates: end: 20220512
  163. RITUXIMAB [Suspect]
     Active Substance: RITUXIMAB
     Dosage: UNK
     Route: 065
     Dates: end: 20220512
  164. RITUXIMAB [Suspect]
     Active Substance: RITUXIMAB
     Dosage: UNK
     Route: 065
  165. RITUXIMAB [Suspect]
     Active Substance: RITUXIMAB
     Dosage: UNK
     Route: 065
     Dates: end: 20220512
  166. RITUXIMAB [Suspect]
     Active Substance: RITUXIMAB
     Dosage: UNK
     Route: 065
  167. RITUXIMAB [Suspect]
     Active Substance: RITUXIMAB
     Dosage: UNK (RCHOP CHEMO - DOSE AND EX)
     Route: 042
     Dates: end: 20220512
  168. RITUXIMAB [Suspect]
     Active Substance: RITUXIMAB
     Dosage: UNK (RCHOP CHEMO - DOSE AND EX)
     Route: 042
     Dates: end: 20220512
  169. RITUXIMAB [Suspect]
     Active Substance: RITUXIMAB
     Dosage: UNK (RCHOP CHEMO - DOSE AND EXACT ROUTE NOT KNOWN.)
     Route: 065
     Dates: end: 20220512
  170. RITUXIMAB [Suspect]
     Active Substance: RITUXIMAB
     Dosage: UNK (RCHOP CHEMO); ; ADDITIONAL INFO: RCHOP CHEMO - DOSE AND EXACT ROUTE NOT KNOWN.
     Route: 065
     Dates: end: 20220512
  171. RITUXIMAB [Suspect]
     Active Substance: RITUXIMAB
     Dosage: UNK (MOST RECENT DOSE ON 12 MAY 2022)
     Route: 065
     Dates: end: 20220512
  172. RITUXIMAB [Suspect]
     Active Substance: RITUXIMAB
     Dosage: UNK (MOST RECENT DOSE ON 12/MAY/2022)
     Route: 065
     Dates: end: 20220512
  173. RITUXIMAB [Suspect]
     Active Substance: RITUXIMAB
     Dosage: UNK UNK, CYCLIC
     Route: 042
     Dates: end: 20220512
  174. RITUXIMAB [Suspect]
     Active Substance: RITUXIMAB
     Dosage: UNK UNK, CYCLIC
     Route: 042
     Dates: end: 20220512
  175. RITUXIMAB [Suspect]
     Active Substance: RITUXIMAB
     Dosage: UNK, CYCLIC (6 CYCLE, RCHOP CHEMO - DOSE)
     Route: 042
     Dates: end: 20220512
  176. RITUXIMAB [Suspect]
     Active Substance: RITUXIMAB
     Dosage: UNK, CYCLIC (6 CYCLE, RCHOP CHEMO - DOSE)
     Route: 042
     Dates: end: 20220512
  177. RITUXIMAB [Suspect]
     Active Substance: RITUXIMAB
     Dosage: UNK, CYCLIC (6 CYCLE, RCHOP CHEMO - DOSE)
     Route: 042
     Dates: end: 20220512
  178. RITUXIMAB [Suspect]
     Active Substance: RITUXIMAB
     Dosage: UNK, CYCLIC (6 CYCLE, RCHOP CHEMO - DOSE)
     Route: 042
     Dates: end: 20220512
  179. RITUXIMAB [Suspect]
     Active Substance: RITUXIMAB
     Dosage: UNK, CYCLIC (6 CYCLE, RCHOP CHEMO - DOSE)
     Route: 065
     Dates: end: 20220512
  180. RITUXIMAB [Suspect]
     Active Substance: RITUXIMAB
     Dosage: UNK, CYCLIC (6 CYCLE, RCHOP CHEMO - DOSE): INTRAVENOUS DRIP, RCHOP CHEMO - DOSE AND EXACT ROUTE NOT
     Route: 065
     Dates: end: 20220512
  181. RITUXIMAB [Suspect]
     Active Substance: RITUXIMAB
     Dosage: UNK, CYCLIC (6 CYCLE, RCHOP CHEMO - DOSE): INTRAVENOUS DRIP, RCHOP CHEMO - DOSE AND EXACT ROUTE NOT
     Route: 042
     Dates: end: 20220512
  182. RITUXIMAB [Suspect]
     Active Substance: RITUXIMAB
     Dosage: UNK, CYCLIC (6 CYCLE, RCHOP CHEMO - DOSE); ; ADDITIONAL INFO: RCHOP CHEMO - DOSE AND EXACT ROUTE NOT
     Route: 065
     Dates: end: 20220512
  183. RITUXIMAB [Suspect]
     Active Substance: RITUXIMAB
     Dosage: UNK, CYCLIC (6 CYCLE, RCHOP CHEMO - DOSE); ; ADDITIONAL INFO: RCHOP CHEMO - DOSE AND EXACT ROUTE NOT
     Route: 065
     Dates: end: 20220512
  184. RITUXIMAB [Suspect]
     Active Substance: RITUXIMAB
     Dosage: UNK, CYCLIC (6 CYCLE, RCHOP CHEMO - DOSE); INTRAVENOUS DRIP
     Route: 041
     Dates: end: 20220512
  185. RITUXIMAB [Suspect]
     Active Substance: RITUXIMAB
     Dosage: UNK, CYCLIC (6 CYCLE, RCHOP CHEMO - DOSE); INTRAVENOUS DRIP
     Route: 041
     Dates: end: 20220512
  186. RITUXIMAB [Suspect]
     Active Substance: RITUXIMAB
     Dosage: UNK, RCHOP CHEMO - DOSE AND EXACT ROUTE NOT KNOWN.
     Route: 065
     Dates: end: 20220512
  187. RITUXIMAB [Suspect]
     Active Substance: RITUXIMAB
     Dosage: UNK; ; ADDITIONAL INFO: RCHOP CHEMO - DOSE AND EXACT ROUTE NOT KNOWN.
     Route: 065
     Dates: end: 20220512
  188. RITUXIMAB [Suspect]
     Active Substance: RITUXIMAB
     Dosage: UNK; ; ADDITIONAL INFO: RCHOP CHEMO - DOSE AND EXACT ROUTE NOT KNOWN.
     Route: 065
     Dates: end: 20220512
  189. RITUXIMAB [Suspect]
     Active Substance: RITUXIMAB
     Dosage: UNK; ; ADDITIONAL INFO: RCHOP CHEMO - DOSE AND EXACT ROUTE NOT KNOWN.
     Route: 065
     Dates: end: 20220512
  190. RITUXIMAB [Suspect]
     Active Substance: RITUXIMAB
     Dosage: UNK; ; ADDITIONAL INFO: RCHOP CHEMO - DOSE AND EXACT ROUTE NOT KNOWN.
     Route: 065
     Dates: end: 20220512
  191. RITUXIMAB [Suspect]
     Active Substance: RITUXIMAB
     Dosage: UUNK (RCHOP CHEMO); ; ADDITIONAL INFO: RCHOP CHEMO - DOSE AND EXACT ROUTE NOT KNOWN.NK
     Route: 065
     Dates: end: 20220512
  192. RITUXIMAB [Suspect]
     Active Substance: RITUXIMAB
     Dosage: MOST RECENT DOSE ON 12/MAY/2022
     Route: 065
     Dates: end: 20220512
  193. RITUXIMAB [Suspect]
     Active Substance: RITUXIMAB
     Dosage: MOST RECENT DOSE ON 12/MAY/2022; ; ADDITIONAL INFO: RCHOP CHEMO - DOSE AND EXACT ROUTE NOT KNOWN
     Route: 065
     Dates: end: 20220512
  194. RITUXIMAB [Suspect]
     Active Substance: RITUXIMAB
     Dosage: MOST RECENT DOSE ON 12/MAY/2022; ; ADDITIONAL INFO: RCHOP CHEMO - DOSE AND EXACT ROUTE NOT KNOWN.
     Route: 065
  195. RITUXIMAB [Suspect]
     Active Substance: RITUXIMAB
     Indication: B-cell lymphoma
     Dosage: RITUXIMAB; ; ADDITIONAL INFO: RCHOP CHEMO - DOSE AND EXACT ROUTE NOT KNOWN.
     Route: 065
     Dates: end: 20220512
  196. RITUXIMAB [Suspect]
     Active Substance: RITUXIMAB
     Dosage: RITUXIMAB; ; ADDITIONAL INFO: RCHOP CHEMO - DOSE AND EXACT ROUTE NOT KNOWN.
     Route: 065
     Dates: end: 20220512
  197. VINCRISTINE [Suspect]
     Active Substance: VINCRISTINE
     Dosage: CYCLIC (6 CYCLE, RCHOP CHEMO - DOSE, GASTRO RESISTANT)
     Route: 065
     Dates: end: 20220512
  198. VINCRISTINE [Suspect]
     Active Substance: VINCRISTINE
     Dosage: CYCLIC (6 CYCLE, RCHOP CHEMO - DOSE, GASTRO RESISTANT); ; ADDITIONAL INFO: RCHOP CHEMO - DOSE AND EX
     Route: 065
     Dates: end: 20220512
  199. VINCRISTINE [Suspect]
     Active Substance: VINCRISTINE
     Dosage: DOSE:1, CYCLE/ RCHOP CHEMO - DOSE AND EXACT ROUTE NOT KNOWN CYCLIC (6 CYCLE, RCHOP CHEMO - DOSE, ...
     Route: 065
     Dates: end: 20220512
  200. VINCRISTINE [Suspect]
     Active Substance: VINCRISTINE
     Dosage: DOSE:1, CYCLE/ RCHOP CHEMO - DOSE AND EXACT ROUTE NOT KNOWN CYCLIC (6 CYCLE, RCHOP CHEMO - DOSE, GAS
     Route: 065
     Dates: end: 20220512
  201. VINCRISTINE [Suspect]
     Active Substance: VINCRISTINE
     Dosage: DOSE:1, CYCLE/ RCHOP CHEMO - DOSE AND EXACT ROUTE NOT KNOWN CYCLIC (6 CYCLE, RCHOP CHEMO - DOSE, GAS
     Route: 065
     Dates: end: 20220512
  202. VINCRISTINE [Suspect]
     Active Substance: VINCRISTINE
     Dosage: RCHOP CHEMO
     Route: 065
     Dates: end: 20220512
  203. VINCRISTINE [Suspect]
     Active Substance: VINCRISTINE
     Dosage: RCHOP CHEMO
     Route: 065
     Dates: end: 20220512
  204. VINCRISTINE [Suspect]
     Active Substance: VINCRISTINE
     Dosage: RCHOP CHEMO
     Route: 065
     Dates: end: 20220512
  205. VINCRISTINE [Suspect]
     Active Substance: VINCRISTINE
     Dosage: RCHOP CHEMO - DOSE AND EXACT ROUTE NOT KNOWN.
     Route: 065
     Dates: end: 20220512
  206. VINCRISTINE [Suspect]
     Active Substance: VINCRISTINE
     Dosage: RCHOP CHEMO - DOSE AND EXACT ROUTE NOT KNOWN. CYCLIC (6 CYCLE, RCHOP CHEMO - DOSE, GASTRO RESISTANT)
     Route: 065
     Dates: end: 20220512
  207. VINCRISTINE [Suspect]
     Active Substance: VINCRISTINE
     Dosage: RCHOP CHEMO - DOSE AND EXACT ROUTE NOT KNOWN. CYCLIC (6 CYCLE, RCHOP CHEMO - DOSE, GASTRO RESISTANT)
     Route: 065
     Dates: end: 20220512
  208. VINCRISTINE [Suspect]
     Active Substance: VINCRISTINE
     Dosage: RCHOP CHEMO - DOSE AND EXACT ROUTE NOT KNOWN.; ; ADDITIONAL INFO: RCHOP CHEMO - DOSE AND EXACT ROUTE
     Route: 065
     Dates: end: 20220512
  209. VINCRISTINE [Suspect]
     Active Substance: VINCRISTINE
     Indication: B-cell lymphoma
     Dosage: RCHOP CHEMO - DOSE AND EXACT ROUTE NOT KNOWN.CYCLIC (6 CYCLE, RCHOP CHEMO - DOSE, GASTRO RESISTANT)
     Route: 065
     Dates: end: 20220512
  210. VINCRISTINE [Suspect]
     Active Substance: VINCRISTINE
     Dosage: RCHOP CHEMO - DOSE AND EXACT ROUTE NOT KNOWN.CYCLIC (6 CYCLE, RCHOP CHEMO - DOSE, GASTRO RESISTANT)
     Route: 065
     Dates: end: 20220512
  211. VINCRISTINE [Suspect]
     Active Substance: VINCRISTINE
     Dosage: RCHOP CHEMO - DOSE AND EXACT ROUTE NOT KNOWN.CYCLIC (6 CYCLE, RCHOP CHEMO - DOSE, GASTRO RESISTANT)
     Route: 065
     Dates: end: 20220512
  212. VINCRISTINE [Suspect]
     Active Substance: VINCRISTINE
     Dosage: RCHOP CHEMO, MOST RECENT DOSE ON 12/MAY/2022
     Route: 065
     Dates: end: 20220512
  213. VINCRISTINE [Suspect]
     Active Substance: VINCRISTINE
     Dosage: RCHOP CHEMO, MOST RECENT DOSE ON 12/MAY/2022
     Route: 065
     Dates: end: 20220512
  214. VINCRISTINE [Suspect]
     Active Substance: VINCRISTINE
     Dosage: RCHOP CHEMO, MOST RECENT DOSE ON 12/MAY/2022; ; ADDITIONAL INFO: RCHOP CHEMO - DOSE AND EXACT ROUTE
     Route: 065
     Dates: end: 20220512
  215. VINCRISTINE [Suspect]
     Active Substance: VINCRISTINE
     Dosage: RCHOP CHEMO;
     Route: 065
     Dates: end: 20220512
  216. VINCRISTINE [Suspect]
     Active Substance: VINCRISTINE
     Dosage: RCHOP CHEMO; ; ADDITIONAL INFO: RCHOP CHEMO - DOSE AND EXACT ROUTE NOT KNOWN.
     Route: 065
     Dates: end: 20220512
  217. VINCRISTINE [Suspect]
     Active Substance: VINCRISTINE
     Dosage: RCHOP CHEMO; ; ADDITIONAL INFO: RCHOP CHEMO - DOSE AND EXACT ROUTE NOT KNOWN.
     Route: 065
     Dates: end: 20220512
  218. VINCRISTINE [Suspect]
     Active Substance: VINCRISTINE
     Dosage: UNK (RCHOP CHEMO - DOSE AND EXACT ROUTE NOT KNOWN. CYCLIC (6 CYCLE, RCHOP CHEMO - DOSE, GASTRO RE...
     Route: 065
     Dates: end: 20220512
  219. VINCRISTINE [Suspect]
     Active Substance: VINCRISTINE
     Dosage: UNK (RCHOP CHEMO - DOSE AND EXACT ROUTE NOT KNOWN. CYCLIC (6 CYCLE, RCHOP CHEMO - DOSE, GASTRO RESIS
     Route: 065
     Dates: end: 20220512
  220. VINCRISTINE [Suspect]
     Active Substance: VINCRISTINE
     Dosage: UNK (RCHOP CHEMO - DOSE AND EXACT ROUTE NOT KNOWN.)
     Route: 065
     Dates: end: 20220512
  221. VINCRISTINE [Suspect]
     Active Substance: VINCRISTINE
     Dosage: UNK (RCHOP CHEMO - DOSE AND EXACT ROUTE NOT KNOWN.)
     Route: 065
     Dates: end: 20220512
  222. VINCRISTINE [Suspect]
     Active Substance: VINCRISTINE
     Dosage: UNK (RCHOP CHEMO - DOSE AND EXACT ROUTE NOT KNOWN.)
     Route: 065
     Dates: end: 20220512
  223. VINCRISTINE [Suspect]
     Active Substance: VINCRISTINE
     Indication: B-cell lymphoma
     Dosage: UNK (RCHOP CHEMO - DOSE AND EXACT ROUTE NOT KNOWN.); ; ADDITIONAL INFO: RCHOP CHEMO - DOSE AND EXACT
     Route: 065
     Dates: end: 20220512
  224. VINCRISTINE [Suspect]
     Active Substance: VINCRISTINE
     Dosage: UNK (RCHOP CHEMO)
     Route: 065
     Dates: end: 20220512
  225. VINCRISTINE [Suspect]
     Active Substance: VINCRISTINE
     Dosage: UNK (RCHOP CHEMO, MOST RECENT DOSE ON 12/MAY/2022)
     Route: 065
     Dates: end: 20220512
  226. VINCRISTINE [Suspect]
     Active Substance: VINCRISTINE
     Dosage: UNK UNK, CYCLIC (6 CYCLE RCHOP CHEMO DOSE, GASTRO RESISTANT MOST RECENT DOSE ON 12/MAY/2022
     Route: 065
     Dates: end: 20220512
  227. VINCRISTINE [Suspect]
     Active Substance: VINCRISTINE
     Dosage: UNK, CYCLIC (6 CYCLE, RCHOP CHEMO - DOSE, GASTRO RESISTANT
     Route: 065
     Dates: end: 20220512
  228. VINCRISTINE [Suspect]
     Active Substance: VINCRISTINE
     Dosage: UNK, CYCLIC (6 CYCLE, RCHOP CHEMO - DOSE, GASTRO RESISTANT
     Route: 065
     Dates: end: 20220512
  229. VINCRISTINE [Suspect]
     Active Substance: VINCRISTINE
     Dosage: UNK, CYCLIC (6 CYCLE, RCHOP CHEMO - DOSE, GASTRO RESISTANT)
     Route: 065
     Dates: end: 20220512
  230. VINCRISTINE [Suspect]
     Active Substance: VINCRISTINE
     Dosage: UNK, CYCLIC (6 CYCLE, RCHOP CHEMO - DOSE, GASTRO RESISTANT)
     Route: 065
     Dates: end: 20220512
  231. VINCRISTINE [Suspect]
     Active Substance: VINCRISTINE
     Dosage: UNK, CYCLIC (6 CYCLE, RCHOP CHEMO - DOSE, GASTRO RESISTANT)
     Route: 065
     Dates: end: 20220512
  232. VINCRISTINE [Suspect]
     Active Substance: VINCRISTINE
     Dosage: UNK, CYCLIC (6 CYCLE, RCHOP CHEMO - DOSE, GASTRO RESISTANT)
     Route: 065
     Dates: end: 20220512
  233. VINCRISTINE [Suspect]
     Active Substance: VINCRISTINE
     Dosage: UNK, CYCLIC (6 CYCLE, RCHOP CHEMO - DOSE, GASTRO RESISTANT) RCHOP CHEMO - DOSE AND EXACT ROUTE NOT K
     Route: 065
     Dates: end: 20220512
  234. VINCRISTINE [Suspect]
     Active Substance: VINCRISTINE
     Dosage: UNK, CYCLIC (6 CYCLE, RCHOP CHEMO - DOSE, GASTRO RESISTANT), MOST RECENT DOSE ON 12/MAY/2022; ; ADDI
     Route: 065
     Dates: end: 20220512
  235. VINCRISTINE [Suspect]
     Active Substance: VINCRISTINE
     Dosage: UNK, CYCLIC (6 CYCLE, RCHOP CHEMO - DOSE, GASTRO RESISTANT), MOST RECENT DOSE ON 12/MAY/2022; ; ADDI
     Route: 065
     Dates: end: 20220512
  236. VINCRISTINE [Suspect]
     Active Substance: VINCRISTINE
     Dosage: UNK, CYCLIC (6 CYCLE, RCHOP CHEMO - DOSE, GASTRO RESISTANT), MOST RECENT DOSE ON 12/MAY/2022; ; ADDI
     Route: 065
     Dates: end: 20220512
  237. VINCRISTINE [Suspect]
     Active Substance: VINCRISTINE
     Dosage: UNK, CYCLIC (6 CYCLE, RCHOP CHEMO - DOSE, GASTRO RESISTANT), MOST RECENT DOSE ON 12/MAY/2022; ; ADDI
     Route: 065
     Dates: end: 20220512
  238. VINCRISTINE [Suspect]
     Active Substance: VINCRISTINE
     Dosage: UNK, CYCLIC (6 CYCLE, RCHOP CHEMO - DOSE, GASTRO RESISTANT);
     Route: 065
     Dates: end: 20220512
  239. VINCRISTINE [Suspect]
     Active Substance: VINCRISTINE
     Dosage: UNK, CYCLIC (6 CYCLE, RCHOP CHEMO - DOSE, GASTRO RESISTANT);
     Route: 065
     Dates: end: 20220512
  240. VINCRISTINE [Suspect]
     Active Substance: VINCRISTINE
     Dosage: UNK, CYCLIC (6 CYCLE, RCHOP CHEMO - DOSE, GASTRORESITANT), RCHOP CHEMO - DOSE AND EXACT ROUTE NOT KN
     Route: 065
     Dates: end: 20220512
  241. VINCRISTINE [Suspect]
     Active Substance: VINCRISTINE
     Dosage: UNK, CYCLIC (6 CYCLE, RCHOP CHEMO - DOSE, GASTRORESITANT), RCHOP CHEMO - DOSE AND EXACT ROUTE NOT KN
     Route: 065
     Dates: end: 20220512

REACTIONS (10)
  - Disease progression [Unknown]
  - Cerebellar syndrome [Unknown]
  - Back pain [Unknown]
  - Condition aggravated [Unknown]
  - Balance disorder [Unknown]
  - Abnormal behaviour [Unknown]
  - Lethargy [Unknown]
  - Dysarthria [Unknown]
  - Confusional state [Unknown]
  - Off label use [Unknown]

NARRATIVE: CASE EVENT DATE: 20220514
